FAERS Safety Report 8856135 (Version 1)
Quarter: 2012Q4

REPORT INFORMATION
  Report Type: Spontaneous
  Country: US (occurrence: None)
  Receive Date: 20121023
  Receipt Date: 20121023
  Transmission Date: 20130627
  Serious: Yes (Other)
  Sender: FDA-Public Use
  Company Number: None

PATIENT
  Sex: Female
  Weight: 72.58 kg

DRUGS (1)
  1. ESCITALOPRAM [Suspect]
     Indication: MAJOR DEPRESSIVE DISORDER NOS
     Route: 048
     Dates: start: 20120319, end: 20121016

REACTIONS (10)
  - Drug intolerance [None]
  - Amnesia [None]
  - Drug effect decreased [None]
  - Depressed mood [None]
  - Somnolence [None]
  - Fatigue [None]
  - Alcohol use [None]
  - Condition aggravated [None]
  - Anxiety [None]
  - Product substitution issue [None]
